FAERS Safety Report 6218753-9 (Version None)
Quarter: 2009Q2

REPORT INFORMATION
  Report Type: 
  Country: None (occurrence: None)
  Receive Date: 20090608
  Receipt Date: 20090602
  Transmission Date: 20091009
  Serious: Yes (Disabling)
  Sender: FDA-Public Use
  Company Number: US-AVENTIS-200914747US

PATIENT
  Age: 88 Year
  Sex: Female

DRUGS (2)
  1. LOVENOX [Suspect]
     Indication: THROMBOSIS PROPHYLAXIS
  2. TREATMENT FOR HYPERTENSION [Concomitant]
     Indication: HYPERTENSION
     Dosage: DOSE: UNK

REACTIONS (7)
  - EXTRADURAL HAEMATOMA [None]
  - FAECAL INCONTINENCE [None]
  - MUSCULAR WEAKNESS [None]
  - PARAESTHESIA [None]
  - PARAPLEGIA [None]
  - SENSORY DISTURBANCE [None]
  - URINARY INCONTINENCE [None]
